FAERS Safety Report 5597748-2 (Version None)
Quarter: 2007Q4

REPORT INFORMATION
  Report Type: 
  Country: None (occurrence: None)
  Receive Date: 20071221
  Receipt Date: 20070808
  Transmission Date: 20080405
  Serious: No
  Sender: FDA-Public Use
  Company Number: US-CVT-070146

PATIENT
  Age: 86 Year
  Sex: Female

DRUGS (5)
  1. RANEXA [Suspect]
     Indication: ANGINA PECTORIS
     Dosage: BID, ORAL
     Route: 048
     Dates: start: 20070725, end: 20070819
  2. QUETIAPINE FUMARATE [Concomitant]
  3. MIRTAZAPINE [Concomitant]
  4. DULOXETINE (DULOXETINE) [Concomitant]
  5. MEMANTINE HCL [Concomitant]

REACTIONS (2)
  - DELUSION [None]
  - HALLUCINATION [None]
